FAERS Safety Report 13830275 (Version 3)
Quarter: 2018Q1

REPORT INFORMATION
  Report Type: Spontaneous
  Country: US (occurrence: US)
  Receive Date: 20170803
  Receipt Date: 20180201
  Transmission Date: 20180508
  Serious: No
  Sender: FDA-Public Use
  Company Number: US-SA-2017SA121539

PATIENT
  Age: 73 Year
  Sex: Female
  Weight: 68 kg

DRUGS (22)
  1. NORCO [Concomitant]
     Active Substance: ACETAMINOPHEN\HYDROCODONE BITARTRATE
     Dosage: TWICE DAILY, PRN PAIN-SEVERE (SCALE 7-10)
     Route: 048
  2. VITAMIN D3 [Concomitant]
     Active Substance: CHOLECALCIFEROL
     Route: 048
  3. ALIROCUMAB PREFILLED PEN [Suspect]
     Active Substance: ALIROCUMAB
     Indication: DYSLIPIDAEMIA
     Dates: end: 20171127
  4. MENTHOL/CAMPHOR [Concomitant]
     Dosage: 0.2%-3.5%
     Route: 061
  5. ALIROCUMAB PREFILLED PEN [Suspect]
     Active Substance: ALIROCUMAB
     Indication: HYPERLIPIDAEMIA
     Dates: start: 20170227, end: 20170720
  6. ALIROCUMAB PREFILLED PEN [Suspect]
     Active Substance: ALIROCUMAB
     Indication: DYSLIPIDAEMIA
     Dates: start: 20170227, end: 20170720
  7. PANTHENOL/RETINOL/THIAMINE HYDROCHLORIDE/ASCORBIC ACID/ERGOCALCIFEROL/FOLIC ACID/RIBOFLAVIN/NICOTINA [Concomitant]
     Route: 048
  8. SODIUM CHLORIDE. [Concomitant]
     Active Substance: SODIUM CHLORIDE
     Dosage: AS NEEDED FOR COUGH AND CONGESTION
     Route: 065
  9. ALBUTEROL W/IPRATROPIUM [Concomitant]
     Active Substance: ALBUTEROL\IPRATROPIUM
     Dosage: 100 MCG-20 MCG; 2 PUFF,QID8, PRN SHORTNESS OF BREATH
     Route: 055
  10. FAMOTIDINE. [Concomitant]
     Active Substance: FAMOTIDINE
     Dosage: 60 TAB
     Route: 048
  11. NOVOLIN [Concomitant]
     Active Substance: INSULIN HUMAN
     Dosage: 12 UNITS AM AND 16 UNITS PM
     Route: 065
  12. PANCRELIPASE. [Concomitant]
     Active Substance: PANCRELIPASE
     Dosage: , 1-2 TAB BEFORE EACH MEAL DOSE:30000 UNIT(S)
     Route: 048
  13. PRALUENT [Suspect]
     Active Substance: ALIROCUMAB
     Indication: DYSLIPIDAEMIA
     Route: 058
     Dates: start: 20170227, end: 20170720
  14. PRALUENT [Suspect]
     Active Substance: ALIROCUMAB
     Indication: DYSLIPIDAEMIA
     Route: 058
     Dates: end: 20171127
  15. PRALUENT [Suspect]
     Active Substance: ALIROCUMAB
     Indication: HYPERLIPIDAEMIA
     Route: 058
     Dates: start: 20170227, end: 20170720
  16. PRALUENT [Suspect]
     Active Substance: ALIROCUMAB
     Indication: HYPERLIPIDAEMIA
     Route: 058
     Dates: end: 20171127
  17. ALIROCUMAB PREFILLED PEN [Suspect]
     Active Substance: ALIROCUMAB
     Indication: HYPERLIPIDAEMIA
     Dates: end: 20171127
  18. DOCUSATE [Concomitant]
     Active Substance: DOCUSATE
     Dosage: TWICE DAILY, PRN FOR CONSTIPATION
     Route: 048
  19. MELATONIN [Concomitant]
     Active Substance: MELATONIN
     Route: 048
  20. ALBUTEROL W/IPRATROPIUM [Concomitant]
     Active Substance: ALBUTEROL\IPRATROPIUM
     Dosage: 3ML; QID, PRN AS NEEDED FOR SHORTNESS OF BREATH OR WHEEZING
     Route: 055
  21. GLUCOSAMINE [Concomitant]
     Active Substance: GLUCOSAMINE
     Route: 048
  22. LOSARTAN. [Concomitant]
     Active Substance: LOSARTAN
     Dosage: 1.5 TAB; 75 MG DAILY FOR BLOOD PRESSURE, 135 TAB, SOFT STOP.
     Route: 048

REACTIONS (5)
  - Cough [Unknown]
  - Pain in extremity [Unknown]
  - Bone pain [Recovered/Resolved]
  - Headache [Unknown]
  - Rash [Unknown]

NARRATIVE: CASE EVENT DATE: 20170607
